FAERS Safety Report 8447592-3 (Version None)
Quarter: 2012Q2

REPORT INFORMATION
  Report Type: 
  Country: None (occurrence: None)
  Receive Date: 20120619
  Receipt Date: 20120615
  Transmission Date: 20120825
  Serious: No
  Sender: FDA-Public Use
  Company Number: US-BAYER-2012-060010

PATIENT
  Sex: Female

DRUGS (1)
  1. NATAZIA [Suspect]

REACTIONS (3)
  - LETHARGY [None]
  - DRY SKIN [None]
  - PRURITUS [None]
